FAERS Safety Report 9701200 (Version 1)
Quarter: 2013Q4

REPORT INFORMATION
  Report Type: Spontaneous
  Country: US (occurrence: None)
  Receive Date: 20131119
  Receipt Date: 20131119
  Transmission Date: 20140711
  Serious: Yes (Other)
  Sender: FDA-Public Use
  Company Number: 2013AP009594

PATIENT
  Age: 13 Year
  Sex: Female

DRUGS (7)
  1. DESMOPRESSIN ACETATE NASAL SOLUTION 0.01% [Suspect]
     Indication: HYPOPITUITARISM
     Dosage: ;NAS
  2. DESMOPRESSIN ACETATE NASAL SOLUTION 0.01% [Suspect]
     Indication: DIABETES INSIPIDUS
     Dosage: ;NAS
  3. HYDROCORTISONE [Suspect]
     Indication: HYPOPITUITARISM
  4. HYDROCORTISONE [Suspect]
     Indication: DIABETES INSIPIDUS
  5. SYNTHROID [Suspect]
     Indication: HYPOPITUITARISM
  6. SYNTHROID [Suspect]
     Indication: DIABETES INSIPIDUS
  7. ENOXAPARIN [Suspect]
     Dosage: ;UNK;

REACTIONS (11)
  - Hemiparesis [None]
  - Cerebral infarction [None]
  - Deep vein thrombosis [None]
  - Hyperphagia [None]
  - Hypothalamo-pituitary disorder [None]
  - Obesity [None]
  - Type 2 diabetes mellitus [None]
  - Osteoporosis [None]
  - Narcolepsy [None]
  - Convulsion [None]
  - Von Willebrand^s factor antigen increased [None]
